FAERS Safety Report 12395116 (Version 4)
Quarter: 2016Q2

REPORT INFORMATION
  Report Type: Spontaneous
  Country: US (occurrence: US)
  Receive Date: 20160523
  Receipt Date: 20160614
  Transmission Date: 20160815
  Serious: Yes (Hospitalization, Other)
  Sender: FDA-Public Use
  Company Number: US-MDT-ADR-2016-00920

PATIENT
  Age: 57 Year
  Sex: Male

DRUGS (3)
  1. INTERFERON BETA - 1A [Suspect]
     Active Substance: INTERFERON BETA-1A
     Route: 065
  2. LIORESAL [Suspect]
     Active Substance: BACLOFEN
     Dosage: 684 MCG/DAY
     Route: 037
  3. LIORESAL [Suspect]
     Active Substance: BACLOFEN
     Dosage: 698.4 MCG/DAY
     Route: 037

REACTIONS (2)
  - Pneumonia [Recovered/Resolved]
  - Seizure [Recovered/Resolved]

NARRATIVE: CASE EVENT DATE: 20160512
